FAERS Safety Report 17019438 (Version 1)
Quarter: 2019Q4

REPORT INFORMATION
  Report Type: Spontaneous
  Country: GR (occurrence: GR)
  Receive Date: 20191112
  Receipt Date: 20191112
  Transmission Date: 20200122
  Serious: Yes (Hospitalization, Disabling, Other)
  Sender: FDA-Public Use
  Company Number: GR-EMD SERONO-9127493

PATIENT

DRUGS (1)
  1. REBIF [Suspect]
     Active Substance: INTERFERON BETA-1A
     Indication: PRODUCT USED FOR UNKNOWN INDICATION

REACTIONS (5)
  - Simple partial seizures [Unknown]
  - Disease recurrence [Unknown]
  - Hospitalisation [Unknown]
  - Disability [Unknown]
  - Bone cyst [Unknown]
